FAERS Safety Report 9721369 (Version 1)
Quarter: 2013Q4

REPORT INFORMATION
  Report Type: Spontaneous
  Country: US (occurrence: US)
  Receive Date: 20131129
  Receipt Date: 20131129
  Transmission Date: 20140711
  Serious: No
  Sender: FDA-Public Use
  Company Number: US-PFIZER INC-2013338018

PATIENT
  Sex: Male

DRUGS (3)
  1. LYRICA [Suspect]
     Indication: PAIN IN EXTREMITY
     Dosage: UNK
  2. CARBIDOPA [Suspect]
     Indication: PARKINSON^S DISEASE
     Dosage: UNK
  3. SINEMET [Suspect]
     Indication: PARKINSON^S DISEASE
     Dosage: UNK

REACTIONS (1)
  - Drug ineffective [Unknown]
